FAERS Safety Report 4976402-1 (Version None)
Quarter: 2006Q2

REPORT INFORMATION
  Report Type: 
  Country: None (occurrence: None)
  Receive Date: 20060412
  Receipt Date: 20060403
  Transmission Date: 20061013
  Serious: Yes (Other)
  Sender: FDA-Public Use
  Company Number: 163-21880-06040116

PATIENT

DRUGS (1)
  1. REVLIMID [Suspect]
     Dosage: ORAL
     Route: 048

REACTIONS (1)
  - JAUNDICE CHOLESTATIC [None]
